FAERS Safety Report 9446102 (Version 1)
Quarter: 2013Q3

REPORT INFORMATION
  Report Type: Spontaneous
  Country: US (occurrence: US)
  Receive Date: 20130807
  Receipt Date: 20130807
  Transmission Date: 20140515
  Serious: No
  Sender: FDA-Public Use
  Company Number: US-AMGEN-USASP2013046077

PATIENT
  Age: 44 Year
  Sex: Female
  Weight: 83.9 kg

DRUGS (18)
  1. ENBREL [Suspect]
     Indication: PSORIATIC ARTHROPATHY
     Dosage: 50 MG, QWK
     Route: 058
     Dates: start: 20130603
  2. ENBREL [Suspect]
     Indication: PSORIASIS
  3. WELLCOVORIN [Concomitant]
     Dosage: 5 MG, UNK (1 TAB BY MOUTH 24 HR AFTER METHOTREXATE)
     Route: 048
  4. DELTASONE                          /00044701/ [Concomitant]
     Dosage: 10 MG, UNK (6-5-4-3-2-1)
  5. CELEBREX [Concomitant]
     Dosage: 200 MG, QD
     Route: 048
  6. VICODIN ES [Concomitant]
     Dosage: 7.5 MG, AS NECESSARY (7.5-750 MG) (TAKE ONE TAB BY MOUTH EVERY 6 HRS AS NEEDED)
     Route: 048
  7. BIOTIN [Concomitant]
     Dosage: UNK UNK, QD (1 TAB BY DOES NOT APPLY ROUTE DAILY)
  8. B-12 [Concomitant]
     Dosage: 1500 MUG, QD (TAKE 1 TAB BY MOUTH DAILY)
     Route: 048
  9. VIVELLE-DOT [Concomitant]
     Dosage: UNK  TD (PLACE ON TO SKIN)
     Route: 062
  10. HUMIRA [Concomitant]
     Dosage: 40 MG, QWK (TAKE 1 INJECTION SC PER WEEK)
     Route: 058
  11. LEXAPRO [Concomitant]
     Dosage: 20 MG, QD
     Route: 048
  12. FLONASE [Concomitant]
     Dosage: 50 MUG, QD (1 SPRAY BY NASALROUTE DAILY)
     Route: 045
  13. ADDERALL [Concomitant]
     Dosage: 10 MG, QD
     Route: 048
  14. KLONOPIN [Concomitant]
     Dosage: 0.5 MG, AS NECESSARY (0.5 MG BY MOUTH 4 TIMES DAILY AS NEEDED)
     Route: 048
  15. VITAMIN C                          /00008001/ [Concomitant]
     Dosage: 500 MG, QD
     Route: 048
  16. CLARITIN                           /00917501/ [Concomitant]
     Dosage: 10 MG, QD
     Route: 048
  17. SYNTHROID [Concomitant]
     Dosage: 88 MUG, UNK
     Route: 048
  18. METHOTREXATE [Concomitant]
     Dosage: UNK

REACTIONS (1)
  - Extra dose administered [Recovered/Resolved]
